FAERS Safety Report 10933295 (Version 1)
Quarter: 2015Q1

REPORT INFORMATION
  Report Type: Report from Study
  Country: US (occurrence: US)
  Receive Date: 20150320
  Receipt Date: 20150320
  Transmission Date: 20150721
  Serious: No
  Sender: FDA-Public Use
  Company Number: US-ABBVIE-15P-163-1359943-00

PATIENT
  Age: 57 Year
  Sex: Male

DRUGS (2)
  1. PROGRAF [Concomitant]
     Active Substance: TACROLIMUS\TACROLIMUS ANHYDROUS
     Indication: PRODUCT USED FOR UNKNOWN INDICATION
  2. VIEKIRA PAK [Suspect]
     Active Substance: DASABUVIR\OMBITASVIR\PARITAPREVIR\RITONAVIR
     Indication: CHRONIC HEPATITIS
     Route: 048
     Dates: start: 20150203

REACTIONS (4)
  - Drug level changed [Unknown]
  - Weight decreased [Unknown]
  - Joint swelling [Unknown]
  - Local swelling [Unknown]

NARRATIVE: CASE EVENT DATE: 201502
